FAERS Safety Report 6933103-8 (Version None)
Quarter: 2010Q3

REPORT INFORMATION
  Report Type: 
  Country: None (occurrence: None)
  Receive Date: 20100819
  Receipt Date: 20100813
  Transmission Date: 20110219
  Serious: Yes (Hospitalization)
  Sender: FDA-Public Use
  Company Number: US-BRISTOL-MYERS SQUIBB COMPANY-15223803

PATIENT
  Age: 52 Year
  Sex: Female
  Weight: 92 kg

DRUGS (10)
  1. CYCLOPHOSPHAMIDE [Suspect]
     Indication: BREAST CANCER
     Dosage: INTERRUPTED ON 09JUL2010
     Dates: start: 20100528
  2. DOXORUBICIN HCL [Suspect]
     Indication: BREAST CANCER
     Dosage: DRUG INTERRUPTED ON 09JUL10
     Dates: start: 20100528
  3. ZOFRAN [Concomitant]
  4. LITHIUM [Concomitant]
     Dates: start: 19981201
  5. PROZAC [Concomitant]
     Dates: start: 19981201
  6. COMPAZINE [Concomitant]
  7. FLONASE [Concomitant]
  8. PROAIR HFA [Concomitant]
  9. FLOVENT [Concomitant]
     Dates: start: 20091001
  10. PROAIR HFA [Concomitant]
     Dates: start: 20091001

REACTIONS (1)
  - CEREBROVASCULAR ACCIDENT [None]
